FAERS Safety Report 26072284 (Version 1)
Quarter: 2025Q4

REPORT INFORMATION
  Report Type: Spontaneous
  Country: TW (occurrence: TW)
  Receive Date: 20251120
  Receipt Date: 20251120
  Transmission Date: 20260118
  Serious: Yes (Other)
  Sender: GE HEALTHCARE
  Company Number: TW-GE HEALTHCARE-2025CSU015967

PATIENT
  Age: 72 Year
  Sex: Female
  Weight: 52 kg

DRUGS (1)
  1. VIZAMYL [Suspect]
     Active Substance: FLUTEMETAMOL F-18
     Indication: Diagnostic procedure
     Dosage: UNK, TOTAL
     Route: 065

REACTIONS (4)
  - Oxygen saturation decreased [Recovered/Resolved]
  - Dyspnoea [Recovered/Resolved]
  - Blood pressure increased [Recovered/Resolved]
  - Flushing [Recovered/Resolved]

NARRATIVE: CASE EVENT DATE: 20251111
